FAERS Safety Report 23110443 (Version 4)
Quarter: 2023Q4

REPORT INFORMATION
  Report Type: Report from Study
  Country: US (occurrence: US)
  Receive Date: 20231026
  Receipt Date: 20231215
  Transmission Date: 20240110
  Serious: Yes (Other)
  Sender: FDA-Public Use
  Company Number: US-002147023-NVSC2023US228382

PATIENT
  Sex: Male

DRUGS (1)
  1. ILARIS [Suspect]
     Active Substance: CANAKINUMAB
     Indication: Product used for unknown indication
     Dosage: 150 MILLIGRAM PER MILLILITRE
     Route: 065

REACTIONS (7)
  - Juvenile idiopathic arthritis [Unknown]
  - Gait inability [Unknown]
  - Pain [Unknown]
  - Arthritis [Unknown]
  - Swelling [Unknown]
  - Product physical issue [Unknown]
  - Product availability issue [Unknown]
